FAERS Safety Report 7754097-1 (Version None)
Quarter: 2011Q3

REPORT INFORMATION
  Report Type: 
  Country: None (occurrence: None)
  Receive Date: 20110915
  Receipt Date: 20110908
  Transmission Date: 20111222
  Serious: Yes (Hospitalization, Other)
  Sender: FDA-Public Use
  Company Number: US-AMGEN-USASP2011046130

PATIENT
  Age: 66 Year
  Sex: Female

DRUGS (1)
  1. ENBREL [Suspect]
     Indication: RHEUMATOID ARTHRITIS
     Dosage: 50 MG, QWK
     Dates: start: 20090301

REACTIONS (10)
  - WEIGHT BEARING DIFFICULTY [None]
  - DYSPNOEA [None]
  - DUODENITIS [None]
  - INTERVERTEBRAL DISC DEGENERATION [None]
  - BONE PAIN [None]
  - PYREXIA [None]
  - GASTRITIS [None]
  - ARTHRALGIA [None]
  - OESOPHAGITIS [None]
  - DYSSTASIA [None]
